FAERS Safety Report 21777694 (Version 1)
Quarter: 2022Q4

REPORT INFORMATION
  Report Type: Spontaneous
  Country: DE (occurrence: DE)
  Receive Date: 20221226
  Receipt Date: 20221226
  Transmission Date: 20230112
  Serious: Yes (Death, Life-Threatening)
  Sender: FDA-Public Use
  Company Number: DE-drreddys-LIT/GER/22/0158761

PATIENT
  Age: 44 Year
  Sex: Female

DRUGS (1)
  1. AZACITIDINE [Suspect]
     Active Substance: AZACITIDINE
     Indication: Acute myeloid leukaemia recurrent

REACTIONS (2)
  - Acute myeloid leukaemia recurrent [Fatal]
  - Drug ineffective [Unknown]
